FAERS Safety Report 6338818-0 (Version None)
Quarter: 2009Q3

REPORT INFORMATION
  Report Type: 
  Country: None (occurrence: None)
  Receive Date: 20090903
  Receipt Date: 20090825
  Transmission Date: 20100115
  Serious: Yes (Other)
  Sender: FDA-Public Use
  Company Number: US-WYE-H10758609

PATIENT
  Sex: Male

DRUGS (3)
  1. TORISEL [Suspect]
     Indication: RENAL CELL CARCINOMA
     Route: 042
  2. TORISEL [Suspect]
     Route: 042
  3. AVASTIN [Concomitant]
     Indication: RENAL CELL CARCINOMA
     Dosage: NOT PROVIDED
     Route: 042

REACTIONS (1)
  - TRANSAMINASES INCREASED [None]
